FAERS Safety Report 26183424 (Version 1)
Quarter: 2025Q4

REPORT INFORMATION
  Report Type: Spontaneous
  Country: US (occurrence: US)
  Receive Date: 20251221
  Receipt Date: 20251221
  Transmission Date: 20260118
  Serious: Yes (Other)
  Sender: CIPLA
  Company Number: US-CIPLA LTD.-2025US15825

PATIENT

DRUGS (1)
  1. LENALIDOMIDE [Suspect]
     Active Substance: LENALIDOMIDE
     Indication: Plasma cell myeloma
     Dosage: 10 MILLIGRAM, QD (FOR 14 DAYS ON, 7 DAYS OFF)
     Route: 048

REACTIONS (1)
  - Hip fracture [Unknown]
